FAERS Safety Report 4392751-2 (Version None)
Quarter: 2004Q3

REPORT INFORMATION
  Report Type: 
  Country: None (occurrence: None)
  Receive Date: 20040702
  Receipt Date: 20040622
  Transmission Date: 20050211
  Serious: Yes (Death, Other)
  Sender: FDA-Public Use
  Company Number: 143-20785-04060692

PATIENT
  Age: 96 Month

DRUGS (6)
  1. THALOMID [Suspect]
     Indication: MENINGITIS TUBERCULOUS
     Dosage: 25 MG/KG, DIVIDED INTO THREE DOSES, DAILY, ORAL
     Route: 048
  2. ISONIAZID [Concomitant]
  3. RIFAMPICIN [Concomitant]
  4. PYRAZINAMIDE [Concomitant]
  5. ETHIONAMIDE (ETHIONAMIDE) [Concomitant]
  6. PREDNISONE TAB [Concomitant]

REACTIONS (5)
  - CEREBRAL INFARCTION [None]
  - CEREBRAL ISCHAEMIA [None]
  - DEPRESSED LEVEL OF CONSCIOUSNESS [None]
  - PYREXIA [None]
  - RASH [None]
